FAERS Safety Report 8885035 (Version 2)
Quarter: 2012Q4

REPORT INFORMATION
  Report Type: 
  Country: US (occurrence: US)
  Receive Date: 20121105
  Receipt Date: 20121221
  Transmission Date: 20130627
  Serious: Yes (Hospitalization)
  Sender: FDA-Public Use
  Company Number: US-BIOGENIDEC-2012BI048479

PATIENT
  Age: 43 Year
  Sex: Female
  Weight: 91 kg

DRUGS (34)
  1. AVONEX [Suspect]
     Indication: MULTIPLE SCLEROSIS
     Route: 030
     Dates: start: 20101025
  2. COPAXONE [Concomitant]
     Route: 058
  3. COUMADIN [Concomitant]
     Indication: THROMBOSIS
  4. ZOLOFT (SERTRALINE) [Concomitant]
     Route: 048
  5. ZOLOFT (SERTRALINE) [Concomitant]
     Route: 048
  6. SYNTHYROID [Concomitant]
  7. BACLOFEN [Concomitant]
     Route: 048
  8. BACLOFEN [Concomitant]
     Route: 048
  9. MOTRIN (IBUPROFEN) [Concomitant]
     Route: 048
  10. FIBER [Concomitant]
  11. REBIF [Concomitant]
  12. BETASERON [Concomitant]
     Route: 058
  13. BENADRYL [Concomitant]
     Route: 048
  14. ENABLEX [Concomitant]
     Route: 048
  15. PREDNISONE [Concomitant]
     Route: 048
  16. PREDNISONE [Concomitant]
     Route: 048
  17. PREDNISONE [Concomitant]
     Route: 048
  18. PREDNISONE [Concomitant]
     Route: 048
  19. CEPACOL SORE THROAT LOZENGES [Concomitant]
  20. FIBERCON [Concomitant]
     Route: 048
  21. GABAPENTIN [Concomitant]
     Route: 048
  22. LEVOXYL [Concomitant]
     Route: 048
  23. MAALOX MAX STRENGTH [Concomitant]
     Route: 048
  24. ROBITUSSIN [Concomitant]
     Route: 048
  25. VALTREX [Concomitant]
     Route: 048
  26. VICODIN 5-500 [Concomitant]
     Route: 048
  27. VITAMIN D [Concomitant]
     Route: 048
  28. ZOVIRAX [Concomitant]
  29. LEVOTHYROID [Concomitant]
     Route: 048
  30. MYLANTA [Concomitant]
     Route: 048
  31. OXYCONTIN [Concomitant]
     Route: 048
  32. VENTOLIN [Concomitant]
  33. AMBIEN [Concomitant]
     Route: 048
  34. PERCOCET 5-325 [Concomitant]
     Route: 048

REACTIONS (4)
  - Thrombosis [Recovered/Resolved]
  - Transient ischaemic attack [Recovered/Resolved]
  - Oedema peripheral [Recovered/Resolved]
  - Pain in extremity [Not Recovered/Not Resolved]
